FAERS Safety Report 19183196 (Version 3)
Quarter: 2021Q2

REPORT INFORMATION
  Report Type: Report from Study
  Country: US (occurrence: US)
  Receive Date: 20210427
  Receipt Date: 20210526
  Transmission Date: 20210717
  Serious: No
  Sender: FDA-Public Use
  Company Number: NVSC2021US092670

PATIENT
  Sex: Female

DRUGS (1)
  1. COSENTYX [Suspect]
     Active Substance: SECUKINUMAB
     Indication: PRODUCT USED FOR UNKNOWN INDICATION
     Dosage: 150 MG, BIW
     Route: 058

REACTIONS (7)
  - Impaired healing [Unknown]
  - Product dose omission issue [Unknown]
  - Intentional dose omission [Unknown]
  - Rash [Unknown]
  - Skin lesion [Unknown]
  - Pain in extremity [Unknown]
  - Back pain [Unknown]
